FAERS Safety Report 15553583 (Version 1)
Quarter: 2018Q4

REPORT INFORMATION
  Report Type: Report from Study
  Country: None (occurrence: TR)
  Receive Date: 20181026
  Receipt Date: 20181026
  Transmission Date: 20190205
  Serious: Yes (Death)
  Sender: FDA-Public Use
  Company Number: TR-ABBVIE-18S-161-2531470-00

PATIENT
  Sex: Female
  Weight: 45 kg

DRUGS (6)
  1. DUODOPA [Suspect]
     Active Substance: CARBIDOPA\LEVODOPA
     Indication: PARKINSON^S DISEASE
     Dosage: MD: 7.5 ML,, CD: 3.7 ML, ED: 1.0 ML
     Route: 050
     Dates: start: 20160304
  2. BENEXOL [Concomitant]
     Active Substance: CYANOCOBALAMIN\PYRIDOXINE\THIAMINE
     Indication: VITAMIN SUPPLEMENTATION
     Dosage: 1X1
     Route: 048
     Dates: start: 20160304
  3. NEURONTIN [Concomitant]
     Active Substance: GABAPENTIN
     Indication: ANALGESIC THERAPY
     Dosage: 1X0.5 AS NEEDED
     Route: 048
     Dates: start: 2015
  4. FOLBIOL [Concomitant]
     Active Substance: FOLIC ACID
     Indication: VITAMIN SUPPLEMENTATION
     Dosage: 1X1
     Route: 048
     Dates: start: 20160304
  5. MELATONINE [Concomitant]
     Active Substance: MELATONIN
     Indication: SLEEP DISORDER
     Route: 048
     Dates: start: 20160310
  6. MADOPAR HBS [Concomitant]
     Active Substance: BENSERAZIDE HYDROCHLORIDE\LEVODOPA
     Indication: PARKINSON^S DISEASE
     Dosage: 1X2
     Route: 048
     Dates: start: 20160304

REACTIONS (1)
  - Death [Fatal]
